FAERS Safety Report 18549057 (Version 1)
Quarter: 2020Q4

REPORT INFORMATION
  Report Type: Spontaneous
  Country: US (occurrence: US)
  Receive Date: 20201126
  Receipt Date: 20201126
  Transmission Date: 20210114
  Serious: No
  Sender: FDA-Public Use
  Company Number: US-SA-2020SA339391

PATIENT

DRUGS (1)
  1. DUPIXENT [Suspect]
     Active Substance: DUPILUMAB
     Indication: ASTHMA
     Dosage: UNK
     Dates: start: 20201112

REACTIONS (5)
  - Cardiac disorder [Unknown]
  - Illness [Unknown]
  - Swelling [Unknown]
  - Dyspnoea [Unknown]
  - Injection site reaction [Unknown]
